FAERS Safety Report 19075293 (Version 1)
Quarter: 2021Q1

REPORT INFORMATION
  Report Type: Spontaneous
  Country: US (occurrence: US)
  Receive Date: 20210330
  Receipt Date: 20210330
  Transmission Date: 20210420
  Serious: No
  Sender: FDA-Public Use
  Company Number: US-ROCHE-2586111

PATIENT
  Sex: Male
  Weight: 74.91 kg

DRUGS (2)
  1. ERIVEDGE [Suspect]
     Active Substance: VISMODEGIB
     Route: 048
     Dates: start: 20200401
  2. ERIVEDGE [Suspect]
     Active Substance: VISMODEGIB
     Indication: BASAL CELL CARCINOMA
     Route: 048
     Dates: start: 20200109, end: 202004

REACTIONS (4)
  - Alopecia [Not Recovered/Not Resolved]
  - Anosmia [Not Recovered/Not Resolved]
  - Weight decreased [Not Recovered/Not Resolved]
  - Ageusia [Not Recovered/Not Resolved]
